FAERS Safety Report 20828162 (Version 7)
Quarter: 2022Q4

REPORT INFORMATION
  Report Type: Spontaneous
  Country: CN (occurrence: CN)
  Receive Date: 20220513
  Receipt Date: 20221216
  Transmission Date: 20230112
  Serious: Yes (Hospitalization)
  Sender: FDA-Public Use
  Company Number: CN-GLAXOSMITHKLINE-CN2022APC076611

PATIENT

DRUGS (2)
  1. SERETIDE [Suspect]
     Active Substance: FLUTICASONE PROPIONATE\SALMETEROL XINAFOATE
     Indication: Asthma
     Dosage: UNK , 50/500UG 1X60 D
     Route: 055
     Dates: start: 2019
  2. TIOTROPIUM BROMIDE [Concomitant]
     Active Substance: TIOTROPIUM BROMIDE
     Indication: Asthma
     Dosage: UNK
     Route: 055
     Dates: start: 2019

REACTIONS (3)
  - Hospitalisation [Unknown]
  - Asthma [Unknown]
  - Product complaint [Unknown]

NARRATIVE: CASE EVENT DATE: 20220325
